FAERS Safety Report 4985951-1 (Version None)
Quarter: 2006Q2

REPORT INFORMATION
  Report Type: 
  Country: None (occurrence: None)
  Receive Date: 20060428
  Receipt Date: 20060418
  Transmission Date: 20061013
  Serious: Yes (Hospitalization)
  Sender: FDA-Public Use
  Company Number: 2006AP01871

PATIENT
  Age: 76 Year
  Sex: Male

DRUGS (3)
  1. CRESTOR [Suspect]
     Indication: HYPERCHOLESTEROLAEMIA
     Route: 048
     Dates: start: 20060130, end: 20060319
  2. CRESTOR [Suspect]
     Route: 048
     Dates: start: 20060425
  3. PROSTAGLANDIN E2 [Concomitant]
     Indication: PERIPHERAL CIRCULATORY FAILURE

REACTIONS (2)
  - DEMENTIA [None]
  - PERIPHERAL CIRCULATORY FAILURE [None]
